FAERS Safety Report 6223182-8 (Version None)
Quarter: 2009Q2

REPORT INFORMATION
  Report Type: 
  Country: None (occurrence: None)
  Receive Date: 20090611
  Receipt Date: 20090604
  Transmission Date: 20091009
  Serious: Yes (Other)
  Sender: FDA-Public Use
  Company Number: DE-JNJFOC-20090602136

PATIENT
  Age: 52 Year
  Sex: Female

DRUGS (2)
  1. INVEGA [Suspect]
     Indication: DRUG USE FOR UNKNOWN INDICATION
     Route: 048
  2. VIROSTATIC DRUG NOS [Concomitant]
     Indication: HEPATITIS B
     Route: 065

REACTIONS (2)
  - HEPATIC CIRRHOSIS [None]
  - VIRAL LOAD INCREASED [None]
